FAERS Safety Report 18224428 (Version 1)
Quarter: 2020Q3

REPORT INFORMATION
  Report Type: Spontaneous
  Country: FR (occurrence: FR)
  Receive Date: 20200902
  Receipt Date: 20200902
  Transmission Date: 20201103
  Serious: Yes (Disabling)
  Sender: FDA-Public Use
  Company Number: FR-ANIPHARMA-2020-FR-000229

PATIENT
  Age: 53 Year
  Sex: Female
  Weight: 89 kg

DRUGS (13)
  1. FLUTIFORM [Suspect]
     Active Substance: FLUTICASONE PROPIONATE\FORMOTEROL FUMARATE
     Dosage: 4  DF DAILY
     Route: 055
     Dates: start: 2018
  2. FEBUXOSTAT. [Suspect]
     Active Substance: FEBUXOSTAT
     Dosage: 80 MG DAILY
     Route: 048
     Dates: start: 2015
  3. MYCOPHENOLATE MOFETIL. [Suspect]
     Active Substance: MYCOPHENOLATE MOFETIL
     Dosage: 500 MG DAILY
     Route: 048
     Dates: start: 2018
  4. CANDESARTAN CILEXETIL. [Suspect]
     Active Substance: CANDESARTAN CILEXETIL
     Indication: HYPERTENSION
     Dosage: 2 MG DAILY
     Route: 048
     Dates: start: 2018, end: 20200211
  5. ATORVASTATIN [Suspect]
     Active Substance: ATORVASTATIN
     Dosage: 20 MG DAILY
     Route: 048
     Dates: start: 20130213
  6. PREDNISONE. [Suspect]
     Active Substance: PREDNISONE
     Dosage: 5 MG DAILY
     Route: 048
     Dates: start: 201211
  7. CYCLOSPORINE. [Suspect]
     Active Substance: CYCLOSPORINE
     Dosage: 150 MG DAILY
     Route: 048
     Dates: start: 2015
  8. CLOPIDOGREL HYDROGEN SULFATE [Suspect]
     Active Substance: CLOPIDOGREL BISULFATE
     Dosage: 75 MG DAILY
     Route: 048
     Dates: start: 2018, end: 20200211
  9. VENTOLIN [Suspect]
     Active Substance: ALBUTEROL SULFATE
     Dosage: 100 UG PRN
     Route: 055
     Dates: start: 2018
  10. SEEBRI BREEZHALER [Suspect]
     Active Substance: GLYCOPYRROLATE
     Dosage: 1 DF DAILY
     Route: 055
     Dates: start: 2018
  11. ARANESP [Suspect]
     Active Substance: DARBEPOETIN ALFA
     Dosage: 100 UG MONTH
     Route: 042
     Dates: start: 2017
  12. URAPIDIL [Suspect]
     Active Substance: URAPIDIL
     Dosage: 120 MG DAILY
     Route: 048
     Dates: start: 2013
  13. MONTELUKAST SODIUM. [Suspect]
     Active Substance: MONTELUKAST SODIUM
     Dosage: 10 MG DAILY
     Route: 048
     Dates: start: 2018

REACTIONS (1)
  - Eyelid oedema [Recovered/Resolved with Sequelae]

NARRATIVE: CASE EVENT DATE: 20200117
